FAERS Safety Report 18284132 (Version 1)
Quarter: 2020Q3

REPORT INFORMATION
  Report Type: Spontaneous
  Country: US (occurrence: US)
  Receive Date: 20200918
  Receipt Date: 20200918
  Transmission Date: 20201103
  Serious: No
  Sender: FDA-Public Use
  Company Number: US-PFIZER INC-2020358475

PATIENT
  Age: 62 Year
  Sex: Male
  Weight: 55.79 kg

DRUGS (1)
  1. INLYTA [Suspect]
     Active Substance: AXITINIB
     Indication: RENAL CANCER
     Dosage: 7 MG, 2X/DAY (INLYTA 5MG + (2) 1MG TABLET)
     Route: 048
     Dates: start: 20200522, end: 2020

REACTIONS (1)
  - Neoplasm progression [Unknown]
